FAERS Safety Report 10738834 (Version 1)
Quarter: 2015Q1

REPORT INFORMATION
  Report Type: Spontaneous
  Country: US (occurrence: US)
  Receive Date: 20150126
  Receipt Date: 20150126
  Transmission Date: 20150721
  Serious: No
  Sender: FDA-Public Use
  Company Number: US-DYAX CORP.-2014DX000248

PATIENT
  Age: 63 Year
  Sex: Female
  Weight: 58.11 kg

DRUGS (5)
  1. NAPROXEN. [Suspect]
     Active Substance: NAPROXEN
     Indication: PAIN
     Route: 048
     Dates: start: 20141001
  2. FIRAZYR [Concomitant]
     Active Substance: ICATIBANT ACETATE
     Indication: PRODUCT USED FOR UNKNOWN INDICATION
     Route: 065
  3. KALBITOR [Suspect]
     Active Substance: ECALLANTIDE
     Route: 058
     Dates: start: 2009
  4. KALBITOR [Suspect]
     Active Substance: ECALLANTIDE
     Indication: HEREDITARY ANGIOEDEMA
     Route: 058
     Dates: start: 2013, end: 2013
  5. NAPROXEN. [Suspect]
     Active Substance: NAPROXEN
     Indication: CHONDROCALCINOSIS PYROPHOSPHATE

REACTIONS (6)
  - Cellulitis [Recovered/Resolved]
  - Abdominal pain upper [Unknown]
  - Constipation [Unknown]
  - Catheter site pain [Not Recovered/Not Resolved]
  - Blister [Recovered/Resolved]
  - Chondrocalcinosis pyrophosphate [Recovered/Resolved]

NARRATIVE: CASE EVENT DATE: 20140926
